FAERS Safety Report 4278942-X (Version None)
Quarter: 2004Q1

REPORT INFORMATION
  Report Type: 
  Country: None (occurrence: None)
  Receive Date: 20040126
  Receipt Date: 20031106
  Transmission Date: 20041129
  Serious: Yes (Hospitalization)
  Sender: FDA-Public Use
  Company Number: US-ROCHE-350890

PATIENT
  Age: 53 Year
  Sex: Male

DRUGS (3)
  1. PEG-INTERFERON ALFA 2A (RO 25-8310) [Suspect]
     Dosage: ALTHOUGH THE PATIENT WAS TOLD TO DISCONTINUE MEDICATIONS, HE CONTINUED TO TAKE 3 DOSES OF PEG-INTER+
     Route: 065
     Dates: end: 20031201
  2. RIBAVIRIN [Suspect]
     Route: 048
     Dates: end: 20031027
  3. BLINDED POLYENYLPHOSPHATIDYLCHOLINE [Suspect]
     Dosage: FORMULATION = CHEWABLE TABLETS.
     Route: 048
     Dates: end: 20031027

REACTIONS (12)
  - ANAEMIA [None]
  - AUTONOMIC NEUROPATHY [None]
  - DEHYDRATION [None]
  - DIABETES MELLITUS INADEQUATE CONTROL [None]
  - DIARRHOEA [None]
  - DYSPEPSIA [None]
  - HYPERGLYCAEMIA [None]
  - LUNG INFILTRATION [None]
  - SLEEP DISORDER [None]
  - SYNCOPE [None]
  - SYNCOPE VASOVAGAL [None]
  - TREATMENT NONCOMPLIANCE [None]
